FAERS Safety Report 7775702-X (Version None)
Quarter: 2011Q3

REPORT INFORMATION
  Report Type: 
  Country: None (occurrence: None)
  Receive Date: 20110923
  Receipt Date: 20110406
  Transmission Date: 20111222
  Serious: Yes (Other)
  Sender: FDA-Public Use
  Company Number: ZA-GLAXOSMITHKLINE-B0712432A

PATIENT
  Sex: Female

DRUGS (6)
  1. ESTROFEM [Concomitant]
     Indication: PRODUCT USED FOR UNKNOWN INDICATION
     Dosage: 2MG PER DAY
     Route: 065
  2. ESCITALOPRAM [Concomitant]
     Dosage: 10MG PER DAY
     Route: 065
  3. CELEBREX [Concomitant]
     Indication: PRODUCT USED FOR UNKNOWN INDICATION
     Dosage: 100MG PER DAY
     Route: 065
  4. FOXAIR [Suspect]
     Indication: ASTHMA
     Route: 055
     Dates: start: 20110127, end: 20110302
  5. SERETIDE [Concomitant]
     Indication: PRODUCT USED FOR UNKNOWN INDICATION
     Route: 065
  6. GLUCOPHAGE FORTE [Concomitant]
     Indication: PRODUCT USED FOR UNKNOWN INDICATION
     Dosage: 850MG PER DAY
     Route: 065

REACTIONS (3)
  - OEDEMA MOUTH [None]
  - PRODUCT QUALITY ISSUE [None]
  - SWOLLEN TONGUE [None]
